FAERS Safety Report 7496938-1 (Version None)
Quarter: 2011Q2

REPORT INFORMATION
  Report Type: 
  Country: None (occurrence: None)
  Receive Date: 20110523
  Receipt Date: 20110517
  Transmission Date: 20111010
  Serious: Yes (Hospitalization)
  Sender: FDA-Public Use
  Company Number: FR-MERCK-1102FRA00118

PATIENT
  Age: 45 Year
  Sex: Male
  Weight: 75 kg

DRUGS (9)
  1. AMISULPRIDE [Concomitant]
     Indication: DEPRESSION
     Route: 048
  2. CHLORPROMAZINE HYDROCHLORIDE [Concomitant]
     Indication: DEPRESSION
     Route: 048
  3. ISONIAZID [Concomitant]
     Route: 048
     Dates: start: 20100729, end: 20100812
  4. RIFABUTIN [Concomitant]
     Route: 048
     Dates: start: 20100729, end: 20100812
  5. LINEZOLID [Concomitant]
     Route: 048
  6. LEVOTHYROXINE SODIUM [Concomitant]
     Route: 048
  7. ISENTRESS [Suspect]
     Indication: HIV INFECTION
     Route: 048
     Dates: start: 20100625, end: 20100812
  8. SULFAMETHOXAZOLE AND TRIMETHOPRIM [Suspect]
     Indication: HIV INFECTION
     Route: 048
     Dates: start: 20100616, end: 20100812
  9. EMTRICITABINE AND TENOFOVIR DISOPROXIL FUMARATE [Concomitant]
     Indication: HIV INFECTION
     Route: 048
     Dates: start: 20100625, end: 20100812

REACTIONS (1)
  - DRUG RASH WITH EOSINOPHILIA AND SYSTEMIC SYMPTOMS [None]
